FAERS Safety Report 25299046 (Version 1)
Quarter: 2025Q2

REPORT INFORMATION
  Report Type: Spontaneous
  Country: BR (occurrence: BR)
  Receive Date: 20250512
  Receipt Date: 20250512
  Transmission Date: 20250716
  Serious: Yes (Other)
  Sender: ORGANON
  Company Number: BR-ORGANON-O2505BRA000601

PATIENT
  Sex: Female

DRUGS (1)
  1. ETONOGESTREL [Suspect]
     Active Substance: ETONOGESTREL
     Indication: Contraception
     Route: 023

REACTIONS (2)
  - Tuberculosis [Not Recovered/Not Resolved]
  - Device implantation error [Not Recovered/Not Resolved]
